FAERS Safety Report 18610916 (Version 3)
Quarter: 2021Q1

REPORT INFORMATION
  Report Type: Spontaneous
  Country: US (occurrence: US)
  Receive Date: 20201214
  Receipt Date: 20210111
  Transmission Date: 20210419
  Serious: Yes (Other)
  Sender: FDA-Public Use
  Company Number: US-UCBSA-2020050871

PATIENT
  Sex: Male
  Weight: 205 kg

DRUGS (4)
  1. KEPPRA XR [Suspect]
     Active Substance: LEVETIRACETAM
     Indication: EPILEPSY
     Dosage: INITIAL DOSE
     Route: 048
     Dates: start: 20000921
  2. KEPPRA XR [Suspect]
     Active Substance: LEVETIRACETAM
     Dosage: 2250 MILLIGRAM, 2X/DAY (BID)
     Route: 048
  3. KEPPRA XR [Suspect]
     Active Substance: LEVETIRACETAM
     Dosage: DOSE GRADUALLY LOWERED TO 3000 MG DAILY
     Route: 048
  4. KEPPRA XR [Suspect]
     Active Substance: LEVETIRACETAM
     Indication: SEIZURE
     Dosage: 9000 MG DAILY
     Route: 048

REACTIONS (6)
  - Focal dyscognitive seizures [Recovered/Resolved]
  - Prescribed overdose [Unknown]
  - Product prescribing issue [Unknown]
  - Overdose [Unknown]
  - Aura [Unknown]
  - Spinal disorder [Unknown]
